FAERS Safety Report 8921049 (Version 4)
Quarter: 2013Q1

REPORT INFORMATION
  Report Type: Spontaneous
  Country: US (occurrence: US)
  Receive Date: 20121121
  Receipt Date: 20130214
  Transmission Date: 20140127
  Serious: Yes (Death, Hospitalization, Other)
  Sender: FDA-Public Use
  Company Number: US-ELI_LILLY_AND_COMPANY-US201211003843

PATIENT
  Age: 41 Year
  Sex: Male

DRUGS (6)
  1. WELLBUTRIN SR [Concomitant]
     Dosage: 10 MG, BID
  2. COGENTIN [Concomitant]
     Dosage: 1 MG, BID
  3. SYNTHROID [Concomitant]
     Dosage: 50 UG, QD
  4. ZYPREXA RELPREVV [Suspect]
     Indication: SCHIZOPHRENIA
     Dosage: 405 MG, MONTHLY (1/M)
     Route: 030
     Dates: start: 20120709
  5. DEPAKOTE ER [Concomitant]
     Dosage: 200 MG, EACH EVENING
  6. LATUDA [Concomitant]
     Dosage: 40 MG, QD

REACTIONS (8)
  - Hyperglycaemia [Fatal]
  - Dysarthria [Unknown]
  - Ataxia [Unknown]
  - Fall [Unknown]
  - Confusional state [Unknown]
  - Disorientation [Unknown]
  - Sedation [Unknown]
  - Asthenia [Unknown]
